FAERS Safety Report 26124830 (Version 1)
Quarter: 2025Q4

REPORT INFORMATION
  Report Type: Spontaneous
  Country: US (occurrence: US)
  Receive Date: 20251205
  Receipt Date: 20251205
  Transmission Date: 20260118
  Serious: No
  Sender: ABBVIE
  Company Number: US-ABBVIE-6574971

PATIENT
  Sex: Female

DRUGS (1)
  1. RAPAFLO [Suspect]
     Active Substance: SILODOSIN
     Indication: Urinary tract disorder prophylaxis
     Route: 065

REACTIONS (2)
  - Off label use [Unknown]
  - Off label use [Unknown]
